FAERS Safety Report 6952546-X (Version None)
Quarter: 2010Q3

REPORT INFORMATION
  Report Type: 
  Country: None (occurrence: None)
  Receive Date: 20100829
  Receipt Date: 20100525
  Transmission Date: 20110219
  Serious: No
  Sender: FDA-Public Use
  Company Number: US-ABBOTT-10P-163-0641513-00

PATIENT
  Sex: Female
  Weight: 88.984 kg

DRUGS (6)
  1. NIASPAN [Suspect]
     Indication: BLOOD CHOLESTEROL INCREASED
     Route: 048
     Dates: start: 20090301, end: 20090501
  2. NIASPAN [Suspect]
     Route: 048
     Dates: start: 20090501
  3. NIASPAN [Suspect]
     Route: 048
     Dates: end: 20100301
  4. NIASPAN [Suspect]
     Route: 048
     Dates: start: 20100301
  5. ASPIRIN [Concomitant]
     Indication: PROPHYLAXIS
  6. VITAMINS [Concomitant]
     Indication: VITAMIN SUPPLEMENTATION

REACTIONS (3)
  - BLOOD GLUCOSE INCREASED [None]
  - HEPATIC ENZYME INCREASED [None]
  - HOT FLUSH [None]
